FAERS Safety Report 7069077-1 (Version None)
Quarter: 2010Q4

REPORT INFORMATION
  Report Type: 
  Country: None (occurrence: None)
  Receive Date: 20101028
  Receipt Date: 20101022
  Transmission Date: 20110411
  Serious: Yes (Death, Other)
  Sender: FDA-Public Use
  Company Number: GB-CEPHALON-2010005639

PATIENT
  Sex: Male

DRUGS (3)
  1. TREANDA [Suspect]
     Indication: MULTIPLE MYELOMA
     Route: 042
  2. THALIDOMIDE [Suspect]
     Indication: MULTIPLE MYELOMA
  3. PREDNISOLONE [Suspect]
     Indication: MULTIPLE MYELOMA

REACTIONS (4)
  - BONE PAIN [None]
  - MULTIPLE MYELOMA [None]
  - PANCYTOPENIA [None]
  - PARAPROTEINAEMIA [None]
